FAERS Safety Report 5530116-8 (Version None)
Quarter: 2007Q4

REPORT INFORMATION
  Report Type: 
  Country: None (occurrence: None)
  Receive Date: 20071130
  Receipt Date: 20071120
  Transmission Date: 20080405
  Serious: Yes (Other)
  Sender: FDA-Public Use
  Company Number: PHEH2007US15045

PATIENT
  Age: 87 Year
  Sex: Male

DRUGS (2)
  1. EXJADE [Suspect]
     Indication: IRON OVERLOAD
     Dosage: 1500 MG, QD
     Route: 048
     Dates: start: 20070928
  2. STOOL SOFTENER [Concomitant]

REACTIONS (3)
  - BLINDNESS TRANSIENT [None]
  - CONSTIPATION [None]
  - HEARING IMPAIRED [None]
